FAERS Safety Report 17008624 (Version 1)
Quarter: 2019Q4

REPORT INFORMATION
  Report Type: Spontaneous
  Country: IT (occurrence: IT)
  Receive Date: 20191108
  Receipt Date: 20191108
  Transmission Date: 20200122
  Serious: Yes (Life-Threatening)
  Sender: FDA-Public Use
  Company Number: IT-TEVA-2019-IT-1132621

PATIENT
  Age: 78 Year
  Sex: Male

DRUGS (4)
  1. EN [Concomitant]
     Active Substance: DELORAZEPAM
  2. NIAPRAZINE [Concomitant]
     Active Substance: NIAPRAZINE
     Dosage: 30 MILLIGRAM
  3. DEPAKIN [Concomitant]
     Active Substance: VALPROATE SODIUM
  4. MIRTAZAPINE. [Suspect]
     Active Substance: MIRTAZAPINE
     Indication: DEPRESSION
     Dosage: 30 MILLIGRAM
     Route: 048

REACTIONS (2)
  - Suicide attempt [Unknown]
  - Acute psychosis [Unknown]

NARRATIVE: CASE EVENT DATE: 20190528
